FAERS Safety Report 11875164 (Version 1)
Quarter: 2015Q4

REPORT INFORMATION
  Report Type: Report from Study
  Country: US (occurrence: US)
  Receive Date: 20151229
  Receipt Date: 20151229
  Transmission Date: 20160305
  Serious: Yes (Life-Threatening)
  Sender: FDA-Public Use
  Company Number: PHEH2012US026145

PATIENT
  Sex: Male
  Weight: 59.8 kg

DRUGS (2)
  1. TOBI [Suspect]
     Active Substance: TOBRAMYCIN
     Indication: PSEUDOMONAS INFECTION
     Dosage: 300 MG, BID
     Route: 055
     Dates: start: 20030128, end: 20120605
  2. TOBI [Suspect]
     Active Substance: TOBRAMYCIN
     Indication: CYSTIC FIBROSIS
     Dosage: 300 MG, BID
     Route: 055
     Dates: start: 20121005

REACTIONS (1)
  - Lung disorder [Recovered/Resolved with Sequelae]
